FAERS Safety Report 9412857 (Version 1)
Quarter: 2013Q3

REPORT INFORMATION
  Report Type: Spontaneous
  Country: GB (occurrence: GB)
  Receive Date: 20130722
  Receipt Date: 20130722
  Transmission Date: 20140515
  Serious: Yes (Other)
  Sender: FDA-Public Use
  Company Number: PHHY2013GB076332

PATIENT
  Age: 75 Year
  Sex: Female
  Weight: 77 kg

DRUGS (9)
  1. ALENDRONIC ACID [Suspect]
     Dates: start: 20130703
  2. FOSAMAX [Suspect]
     Route: 048
     Dates: start: 20130703
  3. NITROFURANTOIN [Concomitant]
     Dates: start: 20130219
  4. BENDROFLUMETHIAZIDE [Concomitant]
     Dates: start: 20130402
  5. PREDNISOLONE [Concomitant]
     Dates: start: 20130411
  6. OMEPRAZOLE [Concomitant]
     Dates: start: 20130524
  7. ADCAL [Concomitant]
     Dates: start: 20130624
  8. CODEINE PHOSPHATE [Concomitant]
     Dates: start: 20130703
  9. PARACETAMOL [Concomitant]
     Dates: start: 20130703

REACTIONS (2)
  - Lung disorder [Unknown]
  - Condition aggravated [Unknown]
